FAERS Safety Report 21309311 (Version 1)
Quarter: 2022Q3

REPORT INFORMATION
  Report Type: Spontaneous
  Country: US (occurrence: US)
  Receive Date: 20220908
  Receipt Date: 20220908
  Transmission Date: 20221026
  Serious: No
  Sender: FDA-Public Use
  Company Number: US-BRAINTREE LABORATORIES, INC.-2021BTE00738

PATIENT
  Age: 59 Year
  Sex: Female

DRUGS (5)
  1. SUPREP BOWEL PREP [Suspect]
     Active Substance: MAGNESIUM SULFATE\POTASSIUM SULFATE\SODIUM SULFATE
     Indication: Colonoscopy
     Dosage: {1 X 6 OZ. BOTTLE,1X
     Route: 048
     Dates: start: 20210902
  2. VITAMIN C [Concomitant]
     Active Substance: ASCORBIC ACID
  3. MELATONIN [Concomitant]
     Active Substance: MELATONIN
  4. CALCIUM / MAGNESIUM [Concomitant]
  5. ZINC [Concomitant]
     Active Substance: ZINC

REACTIONS (5)
  - Retching [Unknown]
  - Regurgitation [Unknown]
  - Flatulence [Not Recovered/Not Resolved]
  - Vomiting [Not Recovered/Not Resolved]
  - Abdominal distension [Not Recovered/Not Resolved]

NARRATIVE: CASE EVENT DATE: 20210902
